FAERS Safety Report 7012297-2 (Version None)
Quarter: 2010Q3

REPORT INFORMATION
  Report Type: 
  Country: None (occurrence: None)
  Receive Date: 20100910
  Receipt Date: 20100518
  Transmission Date: 20110219
  Serious: Yes (Other)
  Sender: FDA-Public Use
  Company Number: 1000013917

PATIENT
  Sex: Male

DRUGS (1)
  1. CELEXA [Suspect]
     Dosage: ORAL
     Route: 048

REACTIONS (1)
  - MULTIPLE DRUG OVERDOSE [None]
